FAERS Safety Report 16325364 (Version 1)
Quarter: 2019Q2

REPORT INFORMATION
  Report Type: Report from Study
  Country: ES (occurrence: ES)
  Receive Date: 20190517
  Receipt Date: 20190517
  Transmission Date: 20190711
  Serious: Yes (Other)
  Sender: FDA-Public Use
  Company Number: ES-TEVA-2019-ES-1050295

PATIENT
  Sex: Female

DRUGS (1)
  1. COPAXONE [Suspect]
     Active Substance: GLATIRAMER ACETATE
     Indication: MULTIPLE SCLEROSIS
     Route: 058
     Dates: start: 20150910

REACTIONS (4)
  - Chest discomfort [Recovered/Resolved]
  - Therapy change [Unknown]
  - Immediate post-injection reaction [Recovered/Resolved]
  - Respiratory distress [Recovered/Resolved]
